FAERS Safety Report 13690538 (Version 1)
Quarter: 2017Q2

REPORT INFORMATION
  Report Type: Spontaneous
  Country: DE (occurrence: DE)
  Receive Date: 20170626
  Receipt Date: 20170626
  Transmission Date: 20170830
  Serious: Yes (Hospitalization, Other)
  Sender: FDA-Public Use
  Company Number: DE-BAYER-2017-117771

PATIENT
  Age: 38 Year
  Sex: Female

DRUGS (1)
  1. MIRENA [Suspect]
     Active Substance: LEVONORGESTREL
     Dosage: 20 MCG/24HR, CONT
     Route: 015
     Dates: start: 2008, end: 20170601

REACTIONS (8)
  - Fatigue [None]
  - Cold sweat [None]
  - Dizziness [None]
  - Arrhythmia [None]
  - Panic attack [None]
  - Depression [None]
  - Migraine [None]
  - Aggression [None]

NARRATIVE: CASE EVENT DATE: 20080101
